FAERS Safety Report 11845238 (Version 1)
Quarter: 2015Q4

REPORT INFORMATION
  Report Type: Spontaneous
  Country: JP (occurrence: JP)
  Receive Date: 20151217
  Receipt Date: 20151217
  Transmission Date: 20160305
  Serious: Yes (Life-Threatening)
  Sender: FDA-Public Use
  Company Number: JP-ROXANE LABORATORIES, INC.-2015-RO-02093RO

PATIENT

DRUGS (2)
  1. HEPARIN [Suspect]
     Active Substance: HEPARIN SODIUM
     Indication: EXPOSURE DURING PREGNANCY
     Route: 064
  2. LIDOCAINE HCL TOPICAL SOLUTION USP, 4% [Suspect]
     Active Substance: LIDOCAINE HYDROCHLORIDE
     Indication: EXPOSURE DURING PREGNANCY
     Route: 064

REACTIONS (3)
  - Caesarean section [None]
  - Maternal drugs affecting foetus [None]
  - Premature baby [Unknown]
